FAERS Safety Report 5534096-0 (Version None)
Quarter: 2007Q4

REPORT INFORMATION
  Report Type: 
  Country: None (occurrence: None)
  Receive Date: 20071129
  Receipt Date: 20071129
  Transmission Date: 20080405
  Serious: No
  Sender: FDA-Public Use
  Company Number: None

PATIENT
  Age: 60 Year
  Sex: Male
  Weight: 113.3993 kg

DRUGS (2)
  1. VIAGRA [Suspect]
     Indication: DEPRESSION
     Dosage: 100MG 2X MONTH
     Dates: start: 20000101, end: 20071001
  2. CIALIS [Suspect]
     Indication: ERECTILE DYSFUNCTION
     Dosage: 20MG RARELY
     Dates: start: 20060601, end: 20070301

REACTIONS (5)
  - DRUG EFFECT DECREASED [None]
  - DRUG INEFFECTIVE [None]
  - HEADACHE [None]
  - HYPOACUSIS [None]
  - TINNITUS [None]
